FAERS Safety Report 22605292 (Version 1)
Quarter: 2023Q2

REPORT INFORMATION
  Report Type: Spontaneous
  Country: CA (occurrence: None)
  Receive Date: 20230615
  Receipt Date: 20230615
  Transmission Date: 20230721
  Serious: Yes (Hospitalization)
  Sender: FDA-Public Use
  Company Number: CA-ROCHE-3296612

PATIENT
  Age: 77 Year
  Sex: Male

DRUGS (12)
  1. RITUXIMAB [Suspect]
     Active Substance: RITUXIMAB
     Indication: Vasculitis
     Route: 065
  2. RITUXIMAB [Suspect]
     Active Substance: RITUXIMAB
     Indication: Granulomatosis with polyangiitis
  3. RITUXIMAB [Suspect]
     Active Substance: RITUXIMAB
     Indication: Vasculitis
     Route: 041
  4. RITUXIMAB [Suspect]
     Active Substance: RITUXIMAB
     Indication: Granulomatosis with polyangiitis
  5. ASPIRIN [Concomitant]
     Active Substance: ASPIRIN
     Route: 065
  6. GARLIC [Concomitant]
     Active Substance: GARLIC
  7. ALLOPURINOL [Concomitant]
     Active Substance: ALLOPURINOL
  8. BRILINTA [Concomitant]
     Active Substance: TICAGRELOR
  9. METOPROLOL [Concomitant]
     Active Substance: METOPROLOL
  10. PANTOPRAZOLE [Concomitant]
     Active Substance: PANTOPRAZOLE
  11. RAMIPRIL [Concomitant]
     Active Substance: RAMIPRIL
  12. ROSUVASTATIN [Concomitant]
     Active Substance: ROSUVASTATIN

REACTIONS (7)
  - Myocardial infarction [Unknown]
  - Arthralgia [Unknown]
  - Back pain [Unknown]
  - C-reactive protein increased [Unknown]
  - Granulomatosis with polyangiitis [Unknown]
  - Hypoacusis [Unknown]
  - Speech disorder [Unknown]
